FAERS Safety Report 25158465 (Version 1)
Quarter: 2025Q2

REPORT INFORMATION
  Report Type: Spontaneous
  Country: US (occurrence: US)
  Receive Date: 20250404
  Receipt Date: 20250404
  Transmission Date: 20250716
  Serious: Yes (Hospitalization)
  Sender: GRIFOLS
  Company Number: US-IGSA-BIG0034150

PATIENT
  Age: 21 Year
  Sex: Male

DRUGS (1)
  1. GAMUNEX-C [Suspect]
     Active Substance: HUMAN IMMUNOGLOBULIN G
     Indication: Hypogammaglobulinaemia
     Dosage: 40 GRAM, Q.4WK.
     Route: 042

REACTIONS (5)
  - Appendicitis perforated [Unknown]
  - Vomiting [Unknown]
  - Haematemesis [Unknown]
  - White blood cell count increased [Unknown]
  - Constipation [Unknown]

NARRATIVE: CASE EVENT DATE: 20250301
